FAERS Safety Report 24041674 (Version 1)
Quarter: 2024Q3

REPORT INFORMATION
  Report Type: Report from Study
  Country: US (occurrence: US)
  Receive Date: 20240702
  Receipt Date: 20240702
  Transmission Date: 20241016
  Serious: Yes (Death)
  Sender: BAYER
  Company Number: US-BAYER-2024A094815

PATIENT
  Age: 62 Year
  Sex: Male
  Weight: 97.052 kg

DRUGS (11)
  1. ADEMPAS [Suspect]
     Active Substance: RIOCIGUAT
     Indication: Pulmonary arterial hypertension
     Dosage: UNK
     Dates: start: 20240411
  2. ADEMPAS [Suspect]
     Active Substance: RIOCIGUAT
     Indication: Pulmonary arterial hypertension
     Dosage: 2.5 MG
     Route: 048
  3. ANORO ELLIPTA [Concomitant]
     Active Substance: UMECLIDINIUM BROMIDE\VILANTEROL TRIFENATATE
  4. OPSUMIT [Concomitant]
     Active Substance: MACITENTAN
  5. VITAMIN D3 [Concomitant]
     Active Substance: CHOLECALCIFEROL
  6. ALBUTEROL SULFATE [Concomitant]
     Active Substance: ALBUTEROL SULFATE
  7. ELIQUIS [Concomitant]
     Active Substance: APIXABAN
  8. VITAMINS [Concomitant]
     Active Substance: VITAMINS
  9. PHENOBARBITAL [Concomitant]
     Active Substance: PHENOBARBITAL
  10. FUROSEMIDE [Concomitant]
     Active Substance: FUROSEMIDE
  11. ATROVENT HFA [Concomitant]
     Active Substance: IPRATROPIUM BROMIDE

REACTIONS (1)
  - Death [Fatal]
